FAERS Safety Report 7811325-1 (Version None)
Quarter: 2011Q4

REPORT INFORMATION
  Report Type: 
  Country: None (occurrence: None)
  Receive Date: 20111011
  Receipt Date: 20110927
  Transmission Date: 20120403
  Serious: Yes (Hospitalization)
  Sender: FDA-Public Use
  Company Number: 1060147

PATIENT
  Age: 58 Year
  Sex: Male

DRUGS (15)
  1. CISPLATIN [Suspect]
     Indication: CHEMOTHERAPY
     Dosage: 150 MG MILLIGRAM(S), INTRAVENOUS (NOT OTHERWISE SPECIFIED)
     Route: 042
     Dates: start: 20110803, end: 20110803
  2. PAROXETINE HCL [Concomitant]
  3. (TRIATEC /00885601/) [Concomitant]
  4. MORPHINE SULFATE [Concomitant]
  5. ([PROCTOLOG /01026901/) [Concomitant]
  6. MORPHINE SULFATE [Concomitant]
  7. ONDANSETRON [Concomitant]
  8. DOCETAXEL [Suspect]
     Indication: CHEMOTHERAPY
     Dosage: 150 MG MILLIGRAM(S), INTRAVENOUS (NOT OTHERWISE SPECIFIED)
     Route: 042
     Dates: start: 20110803, end: 20110803
  9. ACETAMINOPHEN [Concomitant]
  10. (NICOPATCH) [Concomitant]
  11. MEDROL [Concomitant]
  12. NEBIVOLOL HCL [Concomitant]
  13. PRIMPERAN TAB [Concomitant]
  14. INNOHEP [Concomitant]
  15. DUPHALAC [Concomitant]

REACTIONS (9)
  - PANCYTOPENIA [None]
  - INTESTINAL DILATATION [None]
  - BACTERIAL TEST POSITIVE [None]
  - DIARRHOEA [None]
  - PYREXIA [None]
  - HYPONATRAEMIA [None]
  - MEGACOLON [None]
  - GASTRIC DILATATION [None]
  - RENAL FAILURE ACUTE [None]
